FAERS Safety Report 25110350 (Version 1)
Quarter: 2025Q1

REPORT INFORMATION
  Report Type: Spontaneous
  Country: US (occurrence: US)
  Receive Date: 20250324
  Receipt Date: 20250324
  Transmission Date: 20250409
  Serious: No
  Sender: Haleon PLC
  Company Number: US-HALEON-2234258

PATIENT
  Age: 17 Year
  Sex: Male

DRUGS (1)
  1. FLONASE SENSIMIST ALLERGY RELIEF [Suspect]
     Active Substance: FLUTICASONE FUROATE
     Indication: Product used for unknown indication

REACTIONS (3)
  - Erythema [Unknown]
  - Hypersensitivity [Unknown]
  - Throat tightness [Unknown]

NARRATIVE: CASE EVENT DATE: 20250320
